FAERS Safety Report 7444337-0 (Version None)
Quarter: 2011Q2

REPORT INFORMATION
  Report Type: 
  Country: None (occurrence: None)
  Receive Date: 20110429
  Receipt Date: 20110419
  Transmission Date: 20111010
  Serious: Yes (Other)
  Sender: FDA-Public Use
  Company Number: CA-SHIRE-SPV1-2011-00650

PATIENT
  Age: 22 Year
  Sex: Male

DRUGS (2)
  1. ADDERALL XR 10 [Suspect]
     Indication: ATTENTION DEFICIT/HYPERACTIVITY DISORDER
     Dosage: 30 MG, 1X/DAY:QD (3 X 30MG)
     Route: 065
     Dates: start: 20100401
  2. ADDERALL XR 10 [Suspect]
     Indication: MAJOR DEPRESSION

REACTIONS (5)
  - FEELING ABNORMAL [None]
  - DEPRESSED LEVEL OF CONSCIOUSNESS [None]
  - PSYCHOTIC DISORDER [None]
  - OVERDOSE [None]
  - DELIRIUM [None]
